FAERS Safety Report 6700474-7 (Version None)
Quarter: 2010Q2

REPORT INFORMATION
  Report Type: 
  Country: None (occurrence: None)
  Receive Date: 20100428
  Receipt Date: 20100421
  Transmission Date: 20101027
  Serious: Yes (Other)
  Sender: FDA-Public Use
  Company Number: GXKR2010JP04495

PATIENT
  Age: 53 Year
  Sex: Female

DRUGS (2)
  1. PACLITAXEL (NGX) [Suspect]
     Indication: ENDOMETRIAL CANCER
     Dosage: 180 MG/M2
     Dates: start: 20051201, end: 20060401
  2. CARBOPLATIN [Concomitant]
     Indication: ENDOMETRIAL CANCER
     Dosage: ONCE EVERY 3 WEEKS (RECEIVED A TOTAL OF 6 DOSES)
     Route: 065
     Dates: start: 20051201, end: 20060401

REACTIONS (3)
  - MORPHOEA [None]
  - OEDEMA PERIPHERAL [None]
  - SCLERODERMA [None]
